FAERS Safety Report 8818695 (Version 2)
Quarter: 2014Q3

REPORT INFORMATION
  Report Type: Report from Study
  Country: US (occurrence: US)
  Receive Date: 20121001
  Receipt Date: 20140812
  Transmission Date: 20150326
  Serious: Yes (Death, Hospitalization, Other)
  Sender: FDA-Public Use
  Company Number: US-ROCHE-1103451

PATIENT
  Sex: Female

DRUGS (7)
  1. HERCEPTIN [Suspect]
     Active Substance: TRASTUZUMAB
     Indication: BREAST CANCER FEMALE
     Dosage: LOADING DOSE
     Route: 042
     Dates: start: 199901
  2. 5-FU [Concomitant]
     Active Substance: FLUOROURACIL
     Dosage: 10 CYCLE IN COMBINATION WITH CYCLOPHOSPHAMIDE AND ADRIAMYCIN
     Route: 065
  3. HERCEPTIN [Suspect]
     Active Substance: TRASTUZUMAB
     Indication: METASTASES TO BONE
  4. XELODA [Suspect]
     Active Substance: CAPECITABINE
     Indication: PRODUCT USED FOR UNKNOWN INDICATION
     Route: 048
  5. HERCEPTIN [Suspect]
     Active Substance: TRASTUZUMAB
     Indication: HAEMATOLOGICAL MALIGNANCY
     Dosage: MAINTAINANCE DOSE
     Route: 042
     Dates: start: 199901
  6. RITUXAN [Suspect]
     Active Substance: RITUXIMAB
     Indication: PRODUCT USED FOR UNKNOWN INDICATION
     Route: 042
  7. 5-FU [Concomitant]
     Active Substance: FLUOROURACIL
     Route: 065
     Dates: start: 199901

REACTIONS (7)
  - Vomiting [Unknown]
  - Death [Fatal]
  - Disease progression [Unknown]
  - Nausea [Unknown]
  - Deafness [Unknown]
  - Post herpetic neuralgia [Unknown]
  - Eye discharge [Unknown]
